FAERS Safety Report 7944727-3 (Version None)
Quarter: 2011Q4

REPORT INFORMATION
  Report Type: 
  Country: None (occurrence: None)
  Receive Date: 20111129
  Receipt Date: 20111123
  Transmission Date: 20120403
  Serious: Yes (Other)
  Sender: FDA-Public Use
  Company Number: US-PFIZER INC-2011287286

PATIENT
  Age: 16 Year
  Sex: Female
  Weight: 45.351 kg

DRUGS (1)
  1. LYRICA [Suspect]
     Indication: CONVERSION DISORDER
     Dosage: 25 MG, DAILY
     Route: 048
     Dates: start: 20111116, end: 20111120

REACTIONS (2)
  - MUSCLE TWITCHING [None]
  - DYSKINESIA [None]
